FAERS Safety Report 17964746 (Version 2)
Quarter: 2020Q4

REPORT INFORMATION
  Report Type: Spontaneous
  Country: US (occurrence: US)
  Receive Date: 20200630
  Receipt Date: 20201124
  Transmission Date: 20210113
  Serious: Yes (Death, Hospitalization, Other)
  Sender: FDA-Public Use
  Company Number: US-NAPPMUNDI-USA-2020-0153898

PATIENT
  Age: 65 Year
  Sex: Female

DRUGS (1)
  1. OXYCONTIN [Suspect]
     Active Substance: OXYCODONE HYDROCHLORIDE
     Indication: PAIN
     Dosage: UNK
     Route: 048

REACTIONS (12)
  - Carpal tunnel decompression [Unknown]
  - Syncope [Unknown]
  - Abdominal discomfort [Unknown]
  - Cerebrovascular accident [Unknown]
  - Cardiac failure congestive [Fatal]
  - Cardiac disorder [Unknown]
  - Spinal operation [Unknown]
  - Intracranial aneurysm [Unknown]
  - Unevaluable event [Unknown]
  - Blindness [Unknown]
  - Diabetes mellitus [Unknown]
  - Dizziness [Unknown]

NARRATIVE: CASE EVENT DATE: 1988
